FAERS Safety Report 8692335 (Version 2)
Quarter: 2012Q4

REPORT INFORMATION
  Report Type: 
  Country: BR (occurrence: BR)
  Receive Date: 20120730
  Receipt Date: 20120828
  Transmission Date: 20130627
  Serious: Yes (Other)
  Sender: FDA-Public Use
  Company Number: PHHY2012BR065183

PATIENT
  Age: 39 Year
  Sex: Female

DRUGS (3)
  1. CATAFLAM [Suspect]
     Indication: OROPHARYNGEAL PAIN
     Dosage: 50 mg, UNK
  2. CATAFLAM [Suspect]
     Indication: CONTUSION
  3. DICLOFENAC SODIUM [Suspect]

REACTIONS (4)
  - Torticollis [Recovered/Resolved]
  - Musculoskeletal stiffness [Recovered/Resolved]
  - Neck pain [Recovered/Resolved]
  - Drug dispensing error [Unknown]
